FAERS Safety Report 8121310-0 (Version None)
Quarter: 2012Q1

REPORT INFORMATION
  Report Type: 
  Country: None (occurrence: None)
  Receive Date: 20120208
  Receipt Date: 20120131
  Transmission Date: 20120608
  Serious: Yes (Hospitalization)
  Sender: FDA-Public Use
  Company Number: US-BAYER-2011-035842

PATIENT
  Age: 47 Year
  Sex: Female
  Weight: 91 kg

DRUGS (4)
  1. YAZ [Suspect]
  2. AXERT [Concomitant]
     Dosage: UNK UNK, PRN
  3. YAZ [Suspect]
     Indication: PREMENSTRUAL SYNDROME
     Dosage: UNK
     Dates: start: 20080402, end: 20080428
  4. YAZ [Suspect]
     Indication: MIGRAINE

REACTIONS (9)
  - ANXIETY [None]
  - PULMONARY EMBOLISM [None]
  - EMOTIONAL DISTRESS [None]
  - FEAR [None]
  - DEEP VEIN THROMBOSIS [None]
  - PSYCHOLOGICAL TRAUMA [None]
  - MENTAL DISORDER [None]
  - INJURY [None]
  - PAIN [None]
